FAERS Safety Report 8411455-X (Version None)
Quarter: 2012Q2

REPORT INFORMATION
  Report Type: 
  Country: None (occurrence: None)
  Receive Date: 20120605
  Receipt Date: 20120508
  Transmission Date: 20120825
  Serious: No
  Sender: FDA-Public Use
  Company Number: US-AMGEN-USASP2012029037

PATIENT
  Sex: Female

DRUGS (2)
  1. DOXYCYCLINE [Concomitant]
     Dosage: 100 MG, UNK
  2. ENBREL [Suspect]
     Indication: PSORIASIS
     Dosage: 50 MG, 2 TIMES/WK
     Dates: start: 20111201

REACTIONS (3)
  - MASS [None]
  - ARTHROPOD BITE [None]
  - HAEMORRHAGE [None]
